FAERS Safety Report 20472577 (Version 3)
Quarter: 2022Q3

REPORT INFORMATION
  Report Type: Report from Study
  Country: US (occurrence: US)
  Receive Date: 20220215
  Receipt Date: 20220902
  Transmission Date: 20221026
  Serious: No
  Sender: FDA-Public Use
  Company Number: US-BEH-2021135811

PATIENT
  Age: 67 Year
  Sex: Female
  Weight: 70.295 kg

DRUGS (6)
  1. HIZENTRA [Suspect]
     Active Substance: HUMAN IMMUNOGLOBULIN G
     Indication: Chronic inflammatory demyelinating polyradiculoneuropathy
     Dosage: 14 GRAM, QW
     Route: 058
  2. HIZENTRA [Suspect]
     Active Substance: HUMAN IMMUNOGLOBULIN G
     Dosage: 28 GRAM, QW
     Route: 058
     Dates: start: 20210728
  3. HIZENTRA [Suspect]
     Active Substance: HUMAN IMMUNOGLOBULIN G
     Dosage: 28 GRAM, QW
     Route: 058
     Dates: start: 20210727
  4. HIZENTRA [Suspect]
     Active Substance: HUMAN IMMUNOGLOBULIN G
     Dosage: 28 GRAM
     Route: 058
  5. DIPHENHYDRAMINE HYDROCHLORIDE [Concomitant]
     Active Substance: DIPHENHYDRAMINE HYDROCHLORIDE
     Indication: Premedication
  6. DIPHENHYDRAMINE HYDROCHLORIDE [Concomitant]
     Active Substance: DIPHENHYDRAMINE HYDROCHLORIDE
     Indication: Premedication

REACTIONS (12)
  - Musculoskeletal disorder [Unknown]
  - No adverse event [Unknown]
  - Underdose [Unknown]
  - Infusion site swelling [Unknown]
  - No adverse event [Unknown]
  - Incorrect dosage administered [Unknown]
  - Rash [Unknown]
  - Infusion site rash [Unknown]
  - Infusion site swelling [Unknown]
  - Injection site extravasation [Recovering/Resolving]
  - No adverse event [Recovering/Resolving]
  - Product use complaint [Recovering/Resolving]

NARRATIVE: CASE EVENT DATE: 20210908
